APPROVED DRUG PRODUCT: OLOPATADINE HYDROCHLORIDE
Active Ingredient: OLOPATADINE HYDROCHLORIDE
Strength: EQ 0.7% BASE
Dosage Form/Route: SOLUTION/DROPS;OPHTHALMIC
Application: A208637 | Product #001
Applicant: FLORIDA PHARMACEUTICAL PRODUCTS LLC
Approved: Feb 19, 2020 | RLD: No | RS: No | Type: DISCN